FAERS Safety Report 18123835 (Version 1)
Quarter: 2020Q3

REPORT INFORMATION
  Report Type: Spontaneous
  Country: US (occurrence: US)
  Receive Date: 20200806
  Receipt Date: 20200806
  Transmission Date: 20201103
  Serious: No
  Sender: FDA-Public Use
  Company Number: None

PATIENT
  Age: 73 Year
  Sex: Female

DRUGS (18)
  1. BIOTIN [Concomitant]
     Active Substance: BIOTIN
  2. BUSPAR [Concomitant]
     Active Substance: BUSPIRONE HYDROCHLORIDE
  3. CLOAZEPAM [Concomitant]
  4. SIMVASTATIN. [Concomitant]
     Active Substance: SIMVASTATIN
  5. TRAMADOL. [Concomitant]
     Active Substance: TRAMADOL
  6. ATENOLOL. [Concomitant]
     Active Substance: ATENOLOL
  7. CALCIUM [Concomitant]
     Active Substance: CALCIUM
  8. FASLODEX [Concomitant]
     Active Substance: FULVESTRANT
  9. FLECAINIDE [Concomitant]
     Active Substance: FLECAINIDE
  10. KRILL OIL [Concomitant]
     Active Substance: DIETARY SUPPLEMENT\KRILL OIL
  11. COENZYME Q10 [Concomitant]
     Active Substance: DIETARY SUPPLEMENT\UBIDECARENONE
  12. DIGESTIVE ADVANTAGE CAPS [Concomitant]
  13. ELIQUIS [Concomitant]
     Active Substance: APIXABAN
  14. MULTIVITAMINS [Concomitant]
     Active Substance: VITAMINS
  15. VITAMIN C [Concomitant]
     Active Substance: ASCORBIC ACID
  16. XGEVA [Concomitant]
     Active Substance: DENOSUMAB
  17. IBRANCE [Suspect]
     Active Substance: PALBOCICLIB
     Indication: BREAST CANCER
     Route: 048
     Dates: start: 20200123
  18. ZOLPIDEM ER [Concomitant]
     Active Substance: ZOLPIDEM TARTRATE

REACTIONS (1)
  - Alopecia [None]
